FAERS Safety Report 9107320 (Version 1)
Quarter: 2013Q1

REPORT INFORMATION
  Report Type: Spontaneous
  Country: GB (occurrence: GB)
  Receive Date: 20130221
  Receipt Date: 20130221
  Transmission Date: 20140127
  Serious: Yes (Other)
  Sender: FDA-Public Use
  Company Number: GB-JNJFOC-20130207507

PATIENT
  Sex: Male

DRUGS (4)
  1. DARUNAVIR [Suspect]
     Indication: ANTIVIRAL TREATMENT
     Route: 065
     Dates: start: 201112
  2. ETRAVIRINE [Suspect]
     Indication: ANTIVIRAL TREATMENT
     Route: 065
     Dates: start: 201112
  3. ISENTRESS [Suspect]
     Indication: ANTIVIRAL TREATMENT
     Route: 048
     Dates: start: 201112
  4. RITONAVIR [Suspect]
     Indication: ANTIVIRAL TREATMENT
     Route: 065
     Dates: start: 201112

REACTIONS (2)
  - Renal failure acute [Unknown]
  - Urine abnormality [Unknown]
